FAERS Safety Report 9362115 (Version 1)
Quarter: 2013Q2

REPORT INFORMATION
  Report Type: Spontaneous
  Country: US (occurrence: US)
  Receive Date: 20130621
  Receipt Date: 20130621
  Transmission Date: 20140414
  Serious: Yes (Other)
  Sender: FDA-Public Use
  Company Number: US-US-EMD SERONO, INC.-7109354

PATIENT
  Age: 27 Year
  Sex: Female
  Weight: 64 kg

DRUGS (2)
  1. REBIF [Suspect]
     Indication: MULTIPLE SCLEROSIS
     Route: 058
     Dates: start: 20110912, end: 201301
  2. ZOLOFT                             /01011401/ [Concomitant]
     Indication: DEPRESSION
     Route: 048
     Dates: start: 201104

REACTIONS (2)
  - Hypersensitivity [Recovered/Resolved with Sequelae]
  - Liver function test abnormal [Unknown]
